FAERS Safety Report 24108795 (Version 1)
Quarter: 2024Q3

REPORT INFORMATION
  Report Type: Report from Study
  Country: US (occurrence: None)
  Receive Date: 20240718
  Receipt Date: 20240718
  Transmission Date: 20241016
  Serious: Yes (Hospitalization)
  Sender: ASTRAZENECA
  Company Number: 2020SE69184

PATIENT
  Sex: Female

DRUGS (16)
  1. LYNPARZA [Suspect]
     Active Substance: OLAPARIB
     Indication: Breast cancer female
     Route: 048
     Dates: start: 20200305
  2. LYNPARZA [Suspect]
     Active Substance: OLAPARIB
     Indication: Cholangiocarcinoma
     Route: 048
     Dates: start: 20200305
  3. LYNPARZA [Suspect]
     Active Substance: OLAPARIB
     Indication: Breast cancer female
     Route: 048
     Dates: start: 20200305
  4. LYNPARZA [Suspect]
     Active Substance: OLAPARIB
     Indication: Cholangiocarcinoma
     Route: 048
     Dates: start: 20200305
  5. FUROSEMIDE [Concomitant]
     Active Substance: FUROSEMIDE
  6. ZINC [Concomitant]
     Active Substance: ZINC
  7. VITAMIN E [Concomitant]
     Active Substance: .ALPHA.-TOCOPHEROL
  8. CINNAMON [Concomitant]
     Active Substance: CINNAMON
  9. VITAMIN B COMPLEX [Concomitant]
     Active Substance: CYANOCOBALAMIN\DEXPANTHENOL\NIACINAMIDE\PYRIDOXINE HYDROCHLORIDE\RIBOFLAVIN 5^-PHOSPHATE SODIUM\THIA
  10. LOSARTAN POTASSIUM [Concomitant]
     Active Substance: LOSARTAN POTASSIUM
  11. VITAMIN D3 [Concomitant]
     Active Substance: CHOLECALCIFEROL
  12. CALCIUM [Concomitant]
     Active Substance: CALCIUM
  13. AMLODIPINE BESYLATE [Concomitant]
     Active Substance: AMLODIPINE BESYLATE
  14. HERBALS\TURMERIC [Concomitant]
     Active Substance: HERBALS\TURMERIC
  15. MAGNESIUM [Concomitant]
     Active Substance: MAGNESIUM
  16. XARELTO [Concomitant]
     Active Substance: RIVAROXABAN

REACTIONS (5)
  - Full blood count decreased [Unknown]
  - Headache [Unknown]
  - Peripheral swelling [Recovering/Resolving]
  - Oedema [Unknown]
  - Gait disturbance [Unknown]
